FAERS Safety Report 4902299-1 (Version None)
Quarter: 2006Q1

REPORT INFORMATION
  Report Type: 
  Country: None (occurrence: None)
  Receive Date: 20060202
  Receipt Date: 20060202
  Transmission Date: 20060701
  Serious: Yes (Hospitalization)
  Sender: FDA-Public Use
  Company Number: None

PATIENT
  Sex: Male

DRUGS (6)
  1. RILUTEK [Suspect]
     Indication: SPINAL MUSCULAR ATROPHY
     Dosage: 20MG BID OTHER
     Dates: start: 20051119, end: 20051121
  2. BETHANOECHOL SOLN [Concomitant]
  3. DOCUSATE SODIUM [Concomitant]
  4. BUDESONIDE [Concomitant]
  5. ALBUTEROL [Concomitant]
  6. NEBULIZATION SOLIN [Concomitant]

REACTIONS (7)
  - ASTHENIA [None]
  - BREATH SOUNDS ABNORMAL [None]
  - FLAIL CHEST [None]
  - HYPERTONIA [None]
  - SHOCK [None]
  - TACHYCARDIA [None]
  - WHEEZING [None]
